FAERS Safety Report 9542639 (Version 2)
Quarter: 2014Q1

REPORT INFORMATION
  Report Type: Spontaneous
  Country: BR (occurrence: BR)
  Receive Date: 20130923
  Receipt Date: 20140108
  Transmission Date: 20141002
  Serious: Yes (Other)
  Sender: FDA-Public Use
  Company Number: BR-PFIZER INC-2013270844

PATIENT
  Age: 75 Year
  Sex: Male

DRUGS (9)
  1. SUTENT [Suspect]
     Indication: PANCREATIC NEUROENDOCRINE TUMOUR
     Dosage: 37.5 MG, UNSPECIFIED FREQUENCY (CYCLE: CONTINUOUS)
     Route: 048
     Dates: start: 20130827
  2. IMOSEC [Concomitant]
     Dosage: UNK
  3. GLIFAGE [Concomitant]
     Dosage: UNK
  4. LOSARTAN [Concomitant]
     Dosage: UNK
  5. TRAYENTA [Concomitant]
     Dosage: UNK
  6. HALOPERIDOL [Concomitant]
     Dosage: UNK
  7. ALLOPURINOL [Concomitant]
     Dosage: UNK
  8. LIPLESS [Concomitant]
     Dosage: UNK
  9. DIAMICRON [Concomitant]
     Dosage: UNK

REACTIONS (6)
  - Dysentery [Unknown]
  - Dry skin [Not Recovered/Not Resolved]
  - Yellow skin [Unknown]
  - Abdominal distension [Recovered/Resolved]
  - Dyspnoea [Unknown]
  - Insomnia [Unknown]
